FAERS Safety Report 4614043-6 (Version None)
Quarter: 2005Q1

REPORT INFORMATION
  Report Type: 
  Country: None (occurrence: None)
  Receive Date: 20050316
  Receipt Date: 20050302
  Transmission Date: 20050727
  Serious: Yes (Other)
  Sender: FDA-Public Use
  Company Number: GBS050316806

PATIENT
  Age: 46 Year
  Sex: Female
  Weight: 50 kg

DRUGS (3)
  1. ZYPREXA [Suspect]
     Indication: MANIA
     Dosage: 15 MG
     Dates: start: 20030711, end: 20030801
  2. PAROXETINE HCL [Concomitant]
  3. ORLEPT (VALPROATE SODIUM) [Concomitant]

REACTIONS (6)
  - ASTHENIA [None]
  - DRY MOUTH [None]
  - NASAL CONGESTION [None]
  - SPEECH DISORDER [None]
  - TREMOR [None]
  - WEIGHT INCREASED [None]
